FAERS Safety Report 12606843 (Version 1)
Quarter: 2016Q3

REPORT INFORMATION
  Report Type: Spontaneous
  Country: DE (occurrence: DE)
  Receive Date: 20160729
  Receipt Date: 20160729
  Transmission Date: 20161109
  Serious: Yes (Other)
  Sender: FDA-Public Use
  Company Number: DE-BAYER-2016-130032

PATIENT
  Age: 24 Year
  Sex: Female
  Weight: 73 kg

DRUGS (1)
  1. MIRENA [Suspect]
     Active Substance: LEVONORGESTREL
     Indication: CONTRACEPTION
     Dosage: 20 MCG/24HR, CONT
     Route: 015
     Dates: start: 20160513, end: 20160628

REACTIONS (7)
  - Device expulsion [Recovered/Resolved]
  - Anger [Recovered/Resolved]
  - Pain [Recovered/Resolved]
  - Uterine spasm [Recovered/Resolved]
  - Complication of device removal [Recovered/Resolved]
  - Menorrhagia [Recovered/Resolved]
  - Cyst [Recovered/Resolved]

NARRATIVE: CASE EVENT DATE: 2016
